FAERS Safety Report 9821018 (Version 1)
Quarter: 2014Q1

REPORT INFORMATION
  Report Type: Spontaneous
  Country: US (occurrence: US)
  Receive Date: 20140116
  Receipt Date: 20140116
  Transmission Date: 20141002
  Serious: Yes (Hospitalization, Other)
  Sender: FDA-Public Use
  Company Number: US-009507513-1401USA002679

PATIENT
  Sex: Female
  Weight: 63.49 kg

DRUGS (4)
  1. FOSAMAX [Suspect]
     Indication: OSTEOPOROSIS
     Dosage: 70 MG, QW
     Route: 048
     Dates: start: 2001, end: 20121011
  2. FOSAMAX [Suspect]
     Dosage: 70 MG, QW
     Route: 048
     Dates: end: 20121011
  3. ALENDRONATE SODIUM [Suspect]
     Indication: OSTEOPOROSIS
     Route: 048
  4. PROTONIX [Concomitant]
     Dosage: UNK
     Dates: start: 2003

REACTIONS (24)
  - Intramedullary rod insertion [Unknown]
  - Bone graft [Unknown]
  - Femur fracture [Unknown]
  - Nausea [Unknown]
  - Impaired healing [Unknown]
  - Fall [Unknown]
  - Femur fracture [Unknown]
  - Hypertension [Unknown]
  - Open reduction of fracture [Unknown]
  - Open reduction of fracture [Unknown]
  - Lymphoedema [Unknown]
  - Depression [Unknown]
  - Anxiety [Unknown]
  - Mastectomy [Unknown]
  - Gastrooesophageal reflux disease [Unknown]
  - Breast reconstruction [Unknown]
  - Foot fracture [Unknown]
  - Fracture nonunion [Unknown]
  - Calculus urinary [Unknown]
  - Breast cancer [Unknown]
  - Drug hypersensitivity [Unknown]
  - Drug hypersensitivity [Unknown]
  - Spinal disorder [Unknown]
  - Foot fracture [Unknown]
